FAERS Safety Report 10225158 (Version 2)
Quarter: 2014Q2

REPORT INFORMATION
  Report Type: Spontaneous
  Country: DE (occurrence: DE)
  Receive Date: 20140609
  Receipt Date: 20140609
  Transmission Date: 20141212
  Serious: Yes (Hospitalization)
  Sender: FDA-Public Use
  Company Number: DE-PFIZER INC-2014136880

PATIENT
  Age: 80 Year
  Sex: Female
  Weight: 93 kg

DRUGS (10)
  1. ELIQUIS [Suspect]
     Indication: CEREBROVASCULAR ACCIDENT PROPHYLAXIS
     Dosage: 5 MG, 2X/DAY
     Route: 048
     Dates: start: 201311, end: 201403
  2. RAMIPRIL [Suspect]
     Indication: HYPERTENSION
     Dosage: 5 MG (HALF TABLET OF 10) IN THE MORNING
     Route: 048
     Dates: start: 200911
  3. RAMIPRIL [Suspect]
     Indication: ATRIAL FIBRILLATION
  4. CONCOR PLUS [Suspect]
     Indication: HYPERTENSION
     Dosage: 5/12.5 ONE IN THE MORNING
     Route: 048
     Dates: start: 201003
  5. CONCOR PLUS [Suspect]
     Indication: TACHYCARDIA
  6. ALLOPURINOL [Suspect]
     Indication: HYPERURICAEMIA
     Dosage: 100 MG, IN THE MORNING
     Dates: start: 201005
  7. L-THYROXINE [Concomitant]
     Dosage: 50 ONE IN THE MORNING
  8. SYMBICORT [Concomitant]
     Dosage: 160/4.5 [MORNING AND NIGHT]
  9. SALBUTAMOL [Concomitant]
     Dosage: AS NEEDED
  10. ZOLPIDEM [Concomitant]
     Dosage: 10 AT NIGHT

REACTIONS (2)
  - Bile duct stone [Recovering/Resolving]
  - Cholelithiasis [Recovered/Resolved]
